FAERS Safety Report 11506864 (Version 3)
Quarter: 2015Q4

REPORT INFORMATION
  Report Type: Spontaneous
  Country: US (occurrence: US)
  Receive Date: 20150915
  Receipt Date: 20151020
  Transmission Date: 20160304
  Serious: Yes (Other)
  Sender: FDA-Public Use
  Company Number: US-ROCHE-1634205

PATIENT
  Sex: Male
  Weight: 97.61 kg

DRUGS (1)
  1. ESBRIET [Suspect]
     Active Substance: PIRFENIDONE
     Indication: IDIOPATHIC PULMONARY FIBROSIS
     Dosage: THERAPY ON HOLD
     Route: 048
     Dates: start: 20150812

REACTIONS (4)
  - Insomnia [Unknown]
  - Dysarthria [Unknown]
  - Peripheral swelling [Unknown]
  - Hallucination [Unknown]
